FAERS Safety Report 12724981 (Version 1)
Quarter: 2016Q3

REPORT INFORMATION
  Report Type: Spontaneous
  Country: CN (occurrence: CN)
  Receive Date: 20160908
  Receipt Date: 20160908
  Transmission Date: 20161109
  Serious: Yes (Other)
  Sender: FDA-Public Use
  Company Number: CN-PFIZER INC-2016422310

PATIENT
  Age: 83 Year
  Sex: Female
  Weight: 57 kg

DRUGS (3)
  1. ELANTAN [Concomitant]
     Active Substance: ISOSORBIDE MONONITRATE
     Indication: VASODILATATION
     Dosage: 50 MG, 1X/DAY
     Route: 048
     Dates: start: 20160505, end: 20160520
  2. NORVASC [Suspect]
     Active Substance: AMLODIPINE BESYLATE
     Indication: HYPERTENSION
     Dosage: 5 MG, 1X/DAY
     Route: 048
     Dates: start: 20160507, end: 20160509
  3. NORVASC [Suspect]
     Active Substance: AMLODIPINE BESYLATE
     Dosage: 7.5 MG, 1X/DAY
     Route: 048
     Dates: start: 20160510, end: 20160511

REACTIONS (3)
  - Headache [Recovered/Resolved]
  - Atrioventricular block complete [Recovered/Resolved]
  - Rhythm idioventricular [Recovered/Resolved]

NARRATIVE: CASE EVENT DATE: 20160509
